FAERS Safety Report 6699936-0 (Version None)
Quarter: 2010Q2

REPORT INFORMATION
  Report Type: 
  Country: None (occurrence: None)
  Receive Date: 20100428
  Receipt Date: 20100427
  Transmission Date: 20101027
  Serious: Yes (Life-Threatening)
  Sender: FDA-Public Use
  Company Number: FR-SANOFI-AVENTIS-2010SA024171

PATIENT
  Age: 21 Year
  Sex: Male

DRUGS (8)
  1. RIFADIN [Suspect]
     Indication: LUNG INFECTION
     Route: 048
     Dates: start: 20091201
  2. SECTRAL [Suspect]
     Indication: DRUG USE FOR UNKNOWN INDICATION
     Route: 048
     Dates: start: 20100101
  3. MINOCYCLINE HCL [Suspect]
     Indication: LUNG INFECTION
     Route: 048
     Dates: start: 20091201, end: 20100408
  4. MYFORTIC [Suspect]
     Indication: RENAL TRANSPLANT
     Route: 048
     Dates: start: 20091024
  5. PROGRAFT [Suspect]
     Indication: RENAL TRANSPLANT
     Route: 048
     Dates: start: 20090701, end: 20100408
  6. MOPRAL [Suspect]
     Indication: DRUG USE FOR UNKNOWN INDICATION
     Route: 048
     Dates: end: 20100408
  7. AMLOR [Suspect]
     Indication: DRUG USE FOR UNKNOWN INDICATION
     Route: 048
  8. FUNGIZONE [Concomitant]
     Indication: LUNG INFECTION
     Route: 048
     Dates: start: 20091201

REACTIONS (3)
  - ABDOMINAL PAIN UPPER [None]
  - LIPASE INCREASED [None]
  - PANCREATITIS NECROTISING [None]
